FAERS Safety Report 6934805-X (Version None)
Quarter: 2010Q3

REPORT INFORMATION
  Report Type: 
  Country: None (occurrence: None)
  Receive Date: 20100820
  Receipt Date: 20100805
  Transmission Date: 20110219
  Serious: Yes (Other)
  Sender: FDA-Public Use
  Company Number: PHHY2008AU30752

PATIENT
  Sex: Female

DRUGS (3)
  1. ZOLEDRONIC [Suspect]
     Indication: OSTEOPOROSIS
     Dosage: 5 MG
     Route: 042
     Dates: start: 20081128
  2. GESTA [Concomitant]
     Dosage: UNK
  3. NEXIUM [Concomitant]
     Dosage: 20 MG PER DAY
     Dates: start: 20070501

REACTIONS (13)
  - ARTHRALGIA [None]
  - BEDRIDDEN [None]
  - DECREASED APPETITE [None]
  - DYSSTASIA [None]
  - FATIGUE [None]
  - HEADACHE [None]
  - LETHARGY [None]
  - MUSCULOSKELETAL DISCOMFORT [None]
  - NAUSEA [None]
  - NECK PAIN [None]
  - OEDEMA PERIPHERAL [None]
  - PARAESTHESIA [None]
  - SWELLING FACE [None]
